FAERS Safety Report 24132410 (Version 1)
Quarter: 2024Q3

REPORT INFORMATION
  Report Type: Spontaneous
  Country: GB (occurrence: GB)
  Receive Date: 20240724
  Receipt Date: 20240724
  Transmission Date: 20241017
  Serious: Yes (Disabling, Other)
  Sender: ABBVIE
  Company Number: None

PATIENT
  Age: 77 Year
  Sex: Male

DRUGS (1)
  1. OZURDEX [Suspect]
     Active Substance: DEXAMETHASONE
     Indication: Macular oedema
     Dosage: TIME INTERVAL: AS NECESSARY
     Route: 050
     Dates: start: 2024, end: 2024

REACTIONS (2)
  - Medication error [Unknown]
  - Corneal oedema [Not Recovered/Not Resolved]

NARRATIVE: CASE EVENT DATE: 20240101
